FAERS Safety Report 7423616-7 (Version None)
Quarter: 2011Q2

REPORT INFORMATION
  Report Type: 
  Country: None (occurrence: None)
  Receive Date: 20110413
  Receipt Date: 20110413
  Transmission Date: 20111010
  Serious: No
  Sender: FDA-Public Use
  Company Number: None

PATIENT
  Sex: Male
  Weight: 81.4207 kg

DRUGS (2)
  1. PACLITAXEL [Suspect]
     Dosage: IV
     Route: 042
     Dates: start: 20110322
  2. PACLITAXEL [Suspect]
     Dosage: 350MG

REACTIONS (3)
  - BLOOD PRESSURE INCREASED [None]
  - CHEST DISCOMFORT [None]
  - FLUSHING [None]
